FAERS Safety Report 5240358-7 (Version None)
Quarter: 2007Q1

REPORT INFORMATION
  Report Type: 
  Country: None (occurrence: None)
  Receive Date: 20070219
  Receipt Date: 20070205
  Transmission Date: 20070707
  Serious: Yes (Hospitalization, Other)
  Sender: FDA-Public Use
  Company Number: PHEH2007US01671

PATIENT
  Age: 70 Year
  Sex: Female
  Weight: 78.004 kg

DRUGS (8)
  1. DURAGESIC [Concomitant]
     Indication: ABDOMINAL PAIN
     Dosage: 50 UG, Q72H
     Route: 062
  2. SENOKOT /USA/ [Concomitant]
     Indication: CONSTIPATION
     Dosage: 2 TABLETS, QOHS
     Route: 048
  3. NEURONTIN [Concomitant]
     Indication: ARTHRALGIA
     Route: 048
  4. IBUPROFEN [Concomitant]
     Dosage: UNK, PRN
     Route: 048
  5. GLEEVEC [Suspect]
     Indication: GASTROINTESTINAL STROMAL TUMOUR
     Dosage: 400 MG, QD
     Route: 048
     Dates: end: 20061101
  6. GLEEVEC [Suspect]
     Dosage: 400 MG, BID
     Route: 048
     Dates: start: 20061101
  7. ANTIEMETICS [Concomitant]
     Indication: NAUSEA
  8. ENSURE [Concomitant]
     Indication: MEDICAL DIET
     Route: 048

REACTIONS (15)
  - ABDOMINAL MASS [None]
  - ANGINA UNSTABLE [None]
  - ARTERIOSCLEROSIS CORONARY ARTERY [None]
  - ASCITES [None]
  - BACK PAIN [None]
  - BOWEL SOUNDS ABNORMAL [None]
  - CHEST DISCOMFORT [None]
  - CHEST PAIN [None]
  - DYSPNOEA [None]
  - HEPATOMEGALY [None]
  - MUSCULOSKELETAL DISCOMFORT [None]
  - NECK PAIN [None]
  - PERICARDIAL EFFUSION [None]
  - PLEURITIC PAIN [None]
  - UPPER RESPIRATORY TRACT INFECTION [None]
